FAERS Safety Report 11416122 (Version 1)
Quarter: 2015Q3

REPORT INFORMATION
  Report Type: Spontaneous
  Country: US (occurrence: US)
  Receive Date: 20150825
  Receipt Date: 20150825
  Transmission Date: 20151125
  Serious: No
  Sender: FDA-Public Use
  Company Number: US-TEVA-551627USA

PATIENT
  Age: 75 Year
  Sex: Female

DRUGS (3)
  1. FEXOFENADINE [Suspect]
     Active Substance: FEXOFENADINE\FEXOFENADINE HYDROCHLORIDE
     Indication: PRODUCT USED FOR UNKNOWN INDICATION
     Route: 048
     Dates: start: 201503
  2. CALCIUM [Concomitant]
     Active Substance: CALCIUM
  3. NADOLOL. [Concomitant]
     Active Substance: NADOLOL

REACTIONS (4)
  - Expired product administered [Unknown]
  - Dizziness [Unknown]
  - Psychomotor hyperactivity [Unknown]
  - Drug administered to patient of inappropriate age [Unknown]

NARRATIVE: CASE EVENT DATE: 201503
